FAERS Safety Report 7415664-8 (Version None)
Quarter: 2011Q2

REPORT INFORMATION
  Report Type: 
  Country: None (occurrence: None)
  Receive Date: 20110414
  Receipt Date: 20110412
  Transmission Date: 20111010
  Serious: Yes (Other)
  Sender: FDA-Public Use
  Company Number: JP-MERCK-1104USA00224

PATIENT
  Age: 90 Year
  Sex: Female

DRUGS (7)
  1. ZOMETA [Suspect]
     Indication: MULTIPLE MYELOMA
     Route: 041
     Dates: start: 20060501, end: 20080801
  2. ALKERAN [Suspect]
     Route: 048
  3. FOSAMAX [Suspect]
     Indication: OSTEOPOROSIS
     Route: 048
     Dates: start: 20080901, end: 20100501
  4. BISPHONAL [Suspect]
     Route: 041
  5. SELBEX [Suspect]
     Route: 048
  6. PREDONINE [Suspect]
     Route: 048
  7. MAGLAX [Suspect]
     Route: 048

REACTIONS (1)
  - OSTEOMYELITIS [None]
